FAERS Safety Report 24185976 (Version 5)
Quarter: 2025Q2

REPORT INFORMATION
  Report Type: Report from Study
  Country: US (occurrence: US)
  Receive Date: 20240807
  Receipt Date: 20250521
  Transmission Date: 20250717
  Serious: Yes (Death, Hospitalization, Other)
  Sender: ABBVIE
  Company Number: US-ABBVIE-5868575

PATIENT
  Age: 67 Year
  Sex: Male
  Weight: 104 kg

DRUGS (2)
  1. SKYRIZI [Suspect]
     Active Substance: RISANKIZUMAB-RZAA
     Indication: Crohn^s disease
     Route: 058
     Dates: start: 2024
  2. SKYRIZI [Suspect]
     Active Substance: RISANKIZUMAB-RZAA
     Route: 058
     Dates: start: 202502

REACTIONS (9)
  - Plasma cell leukaemia [Fatal]
  - Immunisation reaction [Recovered/Resolved]
  - Hernia [Recovered/Resolved]
  - Constipation [Not Recovered/Not Resolved]
  - Cholelithiasis [Recovered/Resolved]
  - Abdominal discomfort [Not Recovered/Not Resolved]
  - Cough [Unknown]
  - Faeces hard [Unknown]
  - Product lot number issue [Unknown]

NARRATIVE: CASE EVENT DATE: 20240101
